FAERS Safety Report 6497419-4 (Version None)
Quarter: 2009Q4

REPORT INFORMATION
  Report Type: 
  Country: None (occurrence: None)
  Receive Date: 20091211
  Receipt Date: 20091127
  Transmission Date: 20100525
  Serious: Yes (Other)
  Sender: FDA-Public Use
  Company Number: 8054570

PATIENT
  Age: 86 Year
  Sex: Male

DRUGS (7)
  1. PREDNISOLONE [Suspect]
  2. AZATHIOPRINE [Suspect]
     Dates: start: 20090121
  3. ALLOPURINOL [Suspect]
     Dates: start: 20080101, end: 20090318
  4. EPREX [Suspect]
     Indication: NEPHROGENIC ANAEMIA
  5. NEORECORMON (NEORECORMON) (NOT SPECIFIED) [Suspect]
     Indication: NEPHROGENIC ANAEMIA
     Dosage: 1000 IU 3W/WEEK, 10000 IU 3 TIMES PER WEEK SUBCUTANEOUS)
     Route: 058
     Dates: start: 20080101
  6. RITIXIMAB (RITUXIMAB) [Suspect]
     Dates: start: 20080101
  7. TRIMETHOPRIM [Suspect]
     Dates: start: 20090624, end: 20091001

REACTIONS (5)
  - DRUG INEFFECTIVE [None]
  - HYPERPARATHYROIDISM [None]
  - IRON DEFICIENCY [None]
  - LOWER RESPIRATORY TRACT INFECTION [None]
  - WEGENER'S GRANULOMATOSIS [None]
